FAERS Safety Report 26016657 (Version 1)
Quarter: 2025Q4

REPORT INFORMATION
  Report Type: Spontaneous
  Country: EU (occurrence: EU)
  Receive Date: 20251110
  Receipt Date: 20251110
  Transmission Date: 20260117
  Serious: Yes (Hospitalization, Other)
  Sender: PHARMOBEDIENT CONSULTING, LLC
  Company Number: EU-Pharmobedient-000436

PATIENT
  Age: 42 Year
  Sex: Male

DRUGS (11)
  1. PACLITAXEL [Suspect]
     Active Substance: PACLITAXEL
     Indication: Testicular germ cell tumour
     Dosage: ON DAY 1, 2 AND 3
  2. CARBOPLATIN [Suspect]
     Active Substance: CARBOPLATIN
     Indication: Testicular germ cell tumour
  3. MESNA [Suspect]
     Active Substance: MESNA
     Indication: Testicular germ cell tumour
     Dosage: ON DAY 1, 2 AND 3
  4. CYCLOPHOSPHAMIDE [Suspect]
     Active Substance: CYCLOPHOSPHAMIDE
     Indication: Testicular germ cell tumour
     Dosage: ON DAY 1, 2 AND 3
  5. ETOPOSIDE [Suspect]
     Active Substance: ETOPOSIDE
     Indication: Testicular germ cell tumour
     Dosage: THREE CONSECUTIVE DAYS
  6. FILGRASTIM [Concomitant]
     Active Substance: FILGRASTIM
     Indication: Product used for unknown indication
  7. PACLITAXEL [Suspect]
     Active Substance: PACLITAXEL
     Indication: Testicular germ cell tumour
     Dosage: ON DAY 1, 2 AND 3 SECOND CHEMO-MOBILIZATION CYCLE
  8. CYCLOPHOSPHAMIDE [Suspect]
     Active Substance: CYCLOPHOSPHAMIDE
     Indication: Testicular germ cell tumour
     Dosage: ON DAY 1, 2 AND 3 SECOND CHEMO-MOBILIZATION CYCLE
  9. MESNA [Suspect]
     Active Substance: MESNA
     Indication: Testicular germ cell tumour
     Dosage: ON DAY 1, 2 AND 3
  10. MESNA [Suspect]
     Active Substance: MESNA
     Indication: Testicular germ cell tumour
     Dosage: SECOND CHEMO-MOBILIZATION CYCLE
  11. MESNA [Suspect]
     Active Substance: MESNA
     Indication: Testicular germ cell tumour
     Dosage: ON DAY 1, 2 AND 3

REACTIONS (6)
  - Febrile neutropenia [Recovered/Resolved]
  - Pancytopenia [Recovered/Resolved]
  - Mucosal inflammation [Unknown]
  - Myelosuppression [Unknown]
  - Ototoxicity [Unknown]
  - Neuropathy peripheral [Unknown]
